FAERS Safety Report 11160009 (Version 2)
Quarter: 2015Q2

REPORT INFORMATION
  Report Type: Spontaneous
  Country: US (occurrence: US)
  Receive Date: 20150603
  Receipt Date: 20150609
  Transmission Date: 20150821
  Serious: Yes (Other)
  Sender: FDA-Public Use
  Company Number: US-BAXTER-2015BAX027970

PATIENT
  Age: 65 Year
  Sex: Female

DRUGS (2)
  1. GAMMAGARD LIQUID [Suspect]
     Active Substance: HUMAN IMMUNOGLOBULIN G
     Indication: IMMUNE SYSTEM DISORDER
     Dosage: INFUSION
     Route: 065
     Dates: start: 20150429, end: 20150429
  2. GAMUNEX [Concomitant]
     Active Substance: HUMAN IMMUNOGLOBULIN G
     Indication: IMMUNE SYSTEM DISORDER
     Route: 065

REACTIONS (12)
  - Chills [Recovering/Resolving]
  - Influenza [Unknown]
  - Vomiting [Recovered/Resolved]
  - Muscle spasms [Recovering/Resolving]
  - Frustration [Unknown]
  - Adverse reaction [Unknown]
  - Malaise [Unknown]
  - Diarrhoea [Recovered/Resolved]
  - Gastrointestinal infection [Unknown]
  - Swelling face [Recovering/Resolving]
  - Oedema [Recovering/Resolving]
  - Headache [Recovering/Resolving]

NARRATIVE: CASE EVENT DATE: 20150429
